FAERS Safety Report 9163580 (Version 4)
Quarter: 2013Q1

REPORT INFORMATION
  Report Type: Spontaneous
  Country: JP (occurrence: None)
  Receive Date: 20130221
  Receipt Date: 20130304
  Transmission Date: 20140127
  Serious: Yes (Hospitalization)
  Sender: FDA-Public Use
  Company Number: SYM-2013-00583

PATIENT
  Age: 68 Year
  Sex: Female
  Weight: 65.9 kg

DRUGS (7)
  1. BAF - 105 (TETRABENAZINE) (UNKNOWN) (TETRABENAZINE) [Suspect]
     Indication: HUNTINGTON^S DISEASE
     Route: 048
     Dates: start: 20110824
  2. MEVALOTIN [Concomitant]
  3. ACTOS (PIOGLITAZONE HYDROCHLORIDE) [Concomitant]
  4. PRODEC [Concomitant]
  5. ZESTRIL [Concomitant]
  6. BASEN [Concomitant]
  7. ZYLORIC [Concomitant]

REACTIONS (12)
  - Gastrointestinal perforation [None]
  - Duodenal ulcer [None]
  - Fall [None]
  - Peritonitis [None]
  - Septic shock [None]
  - Renal impairment [None]
  - Platelet count decreased [None]
  - Fibrin D dimer increased [None]
  - Pleural effusion [None]
  - Atelectasis [None]
  - Depressed level of consciousness [None]
  - Gait disturbance [None]
